FAERS Safety Report 9509927 (Version 1)
Quarter: 2013Q3

REPORT INFORMATION
  Report Type: Spontaneous
  Country: US (occurrence: US)
  Receive Date: 20130909
  Receipt Date: 20130909
  Transmission Date: 20140515
  Serious: No
  Sender: FDA-Public Use
  Company Number: US-BRISTOL-MYERS SQUIBB COMPANY-18803411

PATIENT
  Age: 18 Year
  Sex: Male
  Weight: 81.63 kg

DRUGS (2)
  1. ABILIFY TABS [Suspect]
     Indication: DEPRESSION
     Dates: start: 20130409
  2. ZOLOFT [Concomitant]

REACTIONS (2)
  - Feeling jittery [Unknown]
  - Nausea [Unknown]
